FAERS Safety Report 6045647-4 (Version None)
Quarter: 2009Q1

REPORT INFORMATION
  Report Type: 
  Country: None (occurrence: None)
  Receive Date: 20090121
  Receipt Date: 20090115
  Transmission Date: 20090719
  Serious: Yes (Life-Threatening)
  Sender: FDA-Public Use
  Company Number: IT-NOVOPROD-283277

PATIENT
  Sex: Male

DRUGS (2)
  1. NOVONORM [Suspect]
     Indication: DIABETES MELLITUS
     Dosage: 1 TAB, QD
     Route: 048
     Dates: start: 20080101, end: 20081103
  2. SELOKEN                            /00376902/ [Concomitant]
     Indication: ISCHAEMIC HEART DISEASE PROPHYLAXIS
     Dosage: 1 TAB, QD
     Route: 048
     Dates: start: 20080101, end: 20081103

REACTIONS (3)
  - HYPERPYREXIA [None]
  - HYPOGLYCAEMIA [None]
  - SOPOR [None]
